FAERS Safety Report 5356881-0 (Version None)
Quarter: 2007Q2

REPORT INFORMATION
  Report Type: 
  Country: None (occurrence: None)
  Receive Date: 20070614
  Receipt Date: 20070313
  Transmission Date: 20071010
  Serious: Yes (Other)
  Sender: FDA-Public Use
  Company Number: US-ASTRAZENECA-2007UW04929

PATIENT

DRUGS (1)
  1. ATACAND [Suspect]
     Route: 048

REACTIONS (1)
  - RENAL IMPAIRMENT [None]
